FAERS Safety Report 9965263 (Version 1)
Quarter: 2014Q1

REPORT INFORMATION
  Report Type: Spontaneous
  Country: US (occurrence: US)
  Receive Date: 20140305
  Receipt Date: 20140305
  Transmission Date: 20141002
  Serious: No
  Sender: FDA-Public Use
  Company Number: US-ABBVIE-13P-163-1128356-00

PATIENT
  Age: 49 Year
  Sex: Male
  Weight: 95.34 kg

DRUGS (5)
  1. HUMIRA [Suspect]
     Indication: PSORIASIS
     Dates: start: 20130712, end: 20130712
  2. HUMIRA [Suspect]
     Dates: start: 20130720
  3. METHOTREXATE [Concomitant]
     Indication: PSORIASIS
  4. NORVASC [Concomitant]
     Indication: HYPERTENSION
  5. UNNAMED INHALER [Concomitant]
     Indication: ASTHMA
     Dosage: AS NEEDED

REACTIONS (2)
  - Injection site pain [Not Recovered/Not Resolved]
  - Injection site bruising [Recovered/Resolved]
